FAERS Safety Report 5663143-0 (Version None)
Quarter: 2008Q1

REPORT INFORMATION
  Report Type: 
  Country: None (occurrence: None)
  Receive Date: 20080313
  Receipt Date: 20080307
  Transmission Date: 20080703
  Serious: Yes (Hospitalization)
  Sender: FDA-Public Use
  Company Number: B0511998A

PATIENT
  Age: 34 Year
  Sex: Male

DRUGS (1)
  1. AUGMENTINE (ORAL) [Suspect]
     Indication: PROPHYLAXIS
     Dates: start: 20080123, end: 20080123

REACTIONS (5)
  - ALANINE AMINOTRANSFERASE INCREASED [None]
  - ASPARTATE AMINOTRANSFERASE INCREASED [None]
  - BLOOD BILIRUBIN INCREASED [None]
  - BLOOD PHOSPHORUS INCREASED [None]
  - CHOLESTASIS [None]
